FAERS Safety Report 10358365 (Version 2)
Quarter: 2014Q3

REPORT INFORMATION
  Report Type: Spontaneous
  Country: US (occurrence: None)
  Receive Date: 20140730
  Receipt Date: 20140912
  Transmission Date: 20150326
  Serious: No
  Sender: FDA-Public Use
  Company Number: 2014-US-009140

PATIENT
  Age: 54 Year
  Sex: Female

DRUGS (1)
  1. XYREM [Suspect]
     Active Substance: SODIUM OXYBATE
     Indication: INSOMNIA
     Route: 048
     Dates: start: 201003, end: 2010

REACTIONS (6)
  - No adverse event [None]
  - Shoulder operation [None]
  - Dyskinesia [None]
  - Off label use [None]
  - Neck pain [None]
  - Spondylolisthesis [None]

NARRATIVE: CASE EVENT DATE: 2012
